FAERS Safety Report 12649890 (Version 1)
Quarter: 2016Q3

REPORT INFORMATION
  Report Type: Spontaneous
  Country: US (occurrence: US)
  Receive Date: 20160812
  Receipt Date: 20160812
  Transmission Date: 20161109
  Serious: No
  Sender: FDA-Public Use
  Company Number: US-ASTRAZENECA-2016SE83723

PATIENT
  Age: 22188 Day
  Sex: Female
  Weight: 137.9 kg

DRUGS (3)
  1. BYDUREON [Suspect]
     Active Substance: EXENATIDE
     Indication: WEIGHT DECREASED
     Route: 058
     Dates: start: 20160714
  2. TRESIBA INSULIN [Concomitant]
     Route: 065
  3. HUMALOG [Concomitant]
     Active Substance: INSULIN LISPRO
     Route: 065
     Dates: start: 201605

REACTIONS (5)
  - Abdominal pain [Unknown]
  - Headache [Unknown]
  - Drug ineffective for unapproved indication [Unknown]
  - Back pain [Unknown]
  - Injection site pruritus [Unknown]

NARRATIVE: CASE EVENT DATE: 20160722
